FAERS Safety Report 15758544 (Version 5)
Quarter: 2020Q3

REPORT INFORMATION
  Report Type: Spontaneous
  Country: DE (occurrence: DE)
  Receive Date: 20181225
  Receipt Date: 20200807
  Transmission Date: 20201102
  Serious: Yes (Other)
  Sender: FDA-Public Use
  Company Number: PHHY2018DE193258

PATIENT
  Age: 31 Year
  Sex: Female
  Weight: 68 kg

DRUGS (6)
  1. AZATHIOPRINE. [Suspect]
     Active Substance: AZATHIOPRINE
     Indication: PRODUCT USED FOR UNKNOWN INDICATION
     Dosage: 50 MG, BID
     Route: 065
     Dates: start: 20181116
  2. MESTINON [Concomitant]
     Active Substance: PYRIDOSTIGMINE BROMIDE
     Dosage: 180 MG, BID
     Route: 065
     Dates: start: 201810
  3. MESTINON [Concomitant]
     Active Substance: PYRIDOSTIGMINE BROMIDE
     Dosage: 240 MG
     Route: 065
  4. FLUOXETIN [Concomitant]
     Active Substance: FLUOXETINE HYDROCHLORIDE
     Indication: PRODUCT USED FOR UNKNOWN INDICATION
     Dosage: 20 MG, UNK
     Route: 065
  5. MYCOPHENOLATE MOFETIL. [Suspect]
     Active Substance: MYCOPHENOLATE MOFETIL
     Indication: MUSCULAR WEAKNESS
     Dosage: 2 MG
     Route: 048
     Dates: start: 201312, end: 20181116
  6. MESTINON [Concomitant]
     Active Substance: PYRIDOSTIGMINE BROMIDE
     Indication: MUSCULAR WEAKNESS
     Dosage: 60 MG, QID
     Route: 065
     Dates: end: 201810

REACTIONS (6)
  - Incorrect product administration duration [Unknown]
  - Product administration error [Unknown]
  - Pregnancy test positive [Unknown]
  - Maternal exposure during pregnancy [Unknown]
  - Diplopia [Unknown]
  - Headache [Unknown]

NARRATIVE: CASE EVENT DATE: 20181203
